FAERS Safety Report 19775753 (Version 3)
Quarter: 2021Q3

REPORT INFORMATION
  Report Type: Report from Study
  Country: None (occurrence: US)
  Receive Date: 20210902
  Receipt Date: 20210922
  Transmission Date: 20211014
  Serious: Yes (Other)
  Sender: FDA-Public Use
  Company Number: US-ABBVIE-21K-163-4035591-00

PATIENT
  Sex: Female
  Weight: 82.17 kg

DRUGS (8)
  1. ALENDRONATE [Concomitant]
     Active Substance: ALENDRONATE SODIUM
     Indication: PRODUCT USED FOR UNKNOWN INDICATION
  2. MODERNA COVID?19 VACCINE [Concomitant]
     Active Substance: CX-024414
     Indication: COVID-19 IMMUNISATION
     Route: 030
     Dates: start: 20210506, end: 20210506
  3. HUMIRA [Suspect]
     Active Substance: ADALIMUMAB
     Route: 058
     Dates: start: 20210806
  4. MODERNA COVID?19 VACCINE [Concomitant]
     Active Substance: CX-024414
     Route: 030
     Dates: start: 20210603, end: 20210603
  5. SYNTHROID [Concomitant]
     Active Substance: LEVOTHYROXINE SODIUM
     Indication: PRODUCT USED FOR UNKNOWN INDICATION
  6. VITAMIN D3 [Concomitant]
     Active Substance: CHOLECALCIFEROL
     Indication: SUPPLEMENTATION THERAPY
  7. HUMIRA [Suspect]
     Active Substance: ADALIMUMAB
     Indication: CROHN^S DISEASE
     Route: 058
     Dates: start: 2017, end: 202101
  8. IRON [Concomitant]
     Active Substance: IRON
     Indication: SUPPLEMENTATION THERAPY

REACTIONS (18)
  - Gastrointestinal sounds abnormal [Unknown]
  - Abdominal distension [Unknown]
  - SARS-CoV-2 test positive [Unknown]
  - Flatulence [Unknown]
  - Unevaluable event [Unknown]
  - Large intestinal stenosis [Not Recovered/Not Resolved]
  - Basedow^s disease [Recovered/Resolved]
  - Dizziness [Recovering/Resolving]
  - Loss of personal independence in daily activities [Unknown]
  - Anxiety [Unknown]
  - Off label use [Unknown]
  - Feeling cold [Recovered/Resolved]
  - Insomnia [Unknown]
  - Crohn^s disease [Recovering/Resolving]
  - Dermatitis allergic [Unknown]
  - Depressed mood [Unknown]
  - Gastrointestinal inflammation [Not Recovered/Not Resolved]
  - Asthenia [Unknown]

NARRATIVE: CASE EVENT DATE: 2019
